FAERS Safety Report 15966391 (Version 1)
Quarter: 2019Q1

REPORT INFORMATION
  Report Type: Other
  Country: CZ (occurrence: CZ)
  Receive Date: 20190215
  Receipt Date: 20190215
  Transmission Date: 20190418
  Serious: Yes (Death, Other)
  Sender: FDA-Public Use
  Company Number: CZ-ASTELLAS-2019US005478

PATIENT
  Age: 74 Year
  Sex: Male

DRUGS (5)
  1. ERLOTINIB [Suspect]
     Active Substance: ERLOTINIB
     Indication: ADENOCARCINOMA
  2. PEMETREXED. [Suspect]
     Active Substance: PEMETREXED
     Indication: ADENOCARCINOMA
     Dosage: UNK UNK, UNKNOWN FREQ.
     Route: 065
     Dates: start: 201405
  3. DOCETAXEL. [Suspect]
     Active Substance: DOCETAXEL
     Indication: ADENOCARCINOMA
     Dosage: 80 MG/M2, UNKNOWN FREQ. (LAST DOSE FEB/2015)
     Route: 065
     Dates: start: 201410
  4. CISPLATIN. [Suspect]
     Active Substance: CISPLATIN
     Indication: ADENOCARCINOMA
     Dosage: UNK UNK, UNKNOWN FREQ.
     Route: 065
  5. ERLOTINIB [Suspect]
     Active Substance: ERLOTINIB
     Indication: LUNG NEOPLASM MALIGNANT
     Dosage: UNK UNK, UNKNOWN FREQ.
     Route: 065

REACTIONS (6)
  - Neutropenia [Unknown]
  - Condition aggravated [Unknown]
  - Drug ineffective [Unknown]
  - Anaemia [Unknown]
  - Infection [Fatal]
  - Bone marrow toxicity [Unknown]

NARRATIVE: CASE EVENT DATE: 201410
